FAERS Safety Report 9682238 (Version 2)
Quarter: 2013Q4

REPORT INFORMATION
  Report Type: Spontaneous
  Country: US (occurrence: US)
  Receive Date: 20131112
  Receipt Date: 20131218
  Transmission Date: 20140711
  Serious: Yes (Other)
  Sender: FDA-Public Use
  Company Number: US-B.I. PHARMACEUTICALS,INC./RIDGEFIELD-2013-BI-35175BP

PATIENT
  Age: 74 Year
  Sex: Female

DRUGS (6)
  1. SPIRIVA [Suspect]
     Indication: BRONCHITIS CHRONIC
     Dosage: 18 MCG
     Route: 055
     Dates: start: 20111011
  2. SPIRIVA [Suspect]
     Indication: CHRONIC OBSTRUCTIVE PULMONARY DISEASE
  3. DIAZEPAM [Concomitant]
     Indication: ANXIETY
     Dosage: 10 MG
     Route: 048
     Dates: start: 201111
  4. NORCO [Concomitant]
     Indication: PAIN
     Dosage: 10/325 MG
     Dates: start: 201111
  5. FLEXERIL [Concomitant]
     Indication: MUSCLE SPASMS
     Dosage: 20 MG
     Dates: start: 201302
  6. LISINOPRIL/HCTZ [Concomitant]
     Indication: HYPERTENSION
     Dosage: STRENGTH: 10/12.5 MG, DAILY DOSE: 10/12.5 MG
     Dates: start: 201111, end: 201205

REACTIONS (2)
  - Cardiac aneurysm [Not Recovered/Not Resolved]
  - Aortic aneurysm [Unknown]
